FAERS Safety Report 7807908-5 (Version None)
Quarter: 2011Q4

REPORT INFORMATION
  Report Type: 
  Country: None (occurrence: None)
  Receive Date: 20111011
  Receipt Date: 20110930
  Transmission Date: 20120403
  Serious: Yes (Hospitalization)
  Sender: FDA-Public Use
  Company Number: US-BAXTER-2011BH025810

PATIENT
  Age: 76 Year
  Sex: Male

DRUGS (4)
  1. DIANEAL [Suspect]
     Route: 033
     Dates: start: 20110603
  2. DIANEAL [Suspect]
     Indication: PERITONEAL DIALYSIS
     Route: 033
     Dates: start: 20110603
  3. DIANEAL [Suspect]
     Route: 033
     Dates: start: 20110603
  4. DIANEAL [Suspect]
     Indication: PERITONEAL DIALYSIS
     Route: 033
     Dates: start: 20110603

REACTIONS (5)
  - PERITONEAL DIALYSIS COMPLICATION [None]
  - TREATMENT NONCOMPLIANCE [None]
  - CEREBROVASCULAR ACCIDENT [None]
  - PERITONITIS BACTERIAL [None]
  - CONFUSIONAL STATE [None]
